FAERS Safety Report 23249504 (Version 2)
Quarter: 2023Q4

REPORT INFORMATION
  Report Type: Spontaneous
  Country: JP (occurrence: JP)
  Receive Date: 20231201
  Receipt Date: 20231226
  Transmission Date: 20240109
  Serious: Yes (Hospitalization, Other)
  Sender: FDA-Public Use
  Company Number: JP-GLAXOSMITHKLINE-JP2023JPN165739

PATIENT

DRUGS (3)
  1. LAMICTAL [Suspect]
     Active Substance: LAMOTRIGINE
     Dosage: UNK, TAPERED DOWN
  2. LITHIUM CARBONATE [Suspect]
     Active Substance: LITHIUM CARBONATE
     Dosage: UNK, TAPERED DOWN
  3. QUETIAPINE [Suspect]
     Active Substance: QUETIAPINE
     Dosage: UNK, INCREASED AND REDUCED

REACTIONS (6)
  - Persecutory delusion [Unknown]
  - Delusion of reference [Unknown]
  - Psychotic symptom [Unknown]
  - Ileus [Unknown]
  - Condition aggravated [Unknown]
  - Depression [Unknown]
